FAERS Safety Report 16113094 (Version 1)
Quarter: 2019Q1

REPORT INFORMATION
  Report Type: Spontaneous
  Country: FR (occurrence: FR)
  Receive Date: 20190325
  Receipt Date: 20190325
  Transmission Date: 20190418
  Serious: Yes (Other)
  Sender: FDA-Public Use
  Company Number: FR-SA-2019SA078622

PATIENT
  Age: 11 Year
  Sex: Female
  Weight: 28 kg

DRUGS (4)
  1. AMOXICILLIN SODIUM [Suspect]
     Active Substance: AMOXICILLIN SODIUM
     Indication: BRAIN EMPYEMA
     Dosage: 18000 MG, Q8H
     Route: 042
     Dates: start: 20190111, end: 20190118
  2. AMOXICILLIN SODIUM [Suspect]
     Active Substance: AMOXICILLIN SODIUM
     Dosage: 1800 MG, Q8H
     Route: 042
     Dates: start: 20190131, end: 20190205
  3. METRONIDAZOLE. [Suspect]
     Active Substance: METRONIDAZOLE
     Indication: BRAIN EMPYEMA
     Dosage: 500 MG, Q8H
     Route: 042
     Dates: start: 20190110
  4. ENOXAPARIN SODIUM. [Suspect]
     Active Substance: ENOXAPARIN SODIUM
     Indication: CIRCULATING ANTICOAGULANT
     Dosage: 4000 IU, Q12H
     Route: 058
     Dates: start: 20190111

REACTIONS (1)
  - Neutropenia [Not Recovered/Not Resolved]

NARRATIVE: CASE EVENT DATE: 20190204
